FAERS Safety Report 5629932-3 (Version None)
Quarter: 2008Q1

REPORT INFORMATION
  Report Type: 
  Country: None (occurrence: None)
  Receive Date: 20080218
  Receipt Date: 20080204
  Transmission Date: 20080703
  Serious: Yes (Other)
  Sender: FDA-Public Use
  Company Number: CN-ROCHE-545421

PATIENT
  Age: 50 Year
  Sex: Male
  Weight: 71 kg

DRUGS (5)
  1. ROCALTROL [Suspect]
     Indication: BONE PAIN
     Dosage: FORM SOFT CAPSULE, OTHER INDICATION  CALCIUM DEFICIENCY
     Route: 048
     Dates: start: 20070901
  2. CELLCEPT [Concomitant]
     Route: 048
     Dates: start: 20061201
  3. SANDIMMUNE [Concomitant]
     Indication: RENAL TRANSPLANT
     Route: 048
     Dates: start: 20061201
  4. PREDNISONE TAB [Concomitant]
     Indication: RENAL TRANSPLANT
     Route: 048
     Dates: start: 20061201
  5. TALCID [Concomitant]
     Route: 048
     Dates: start: 20061201

REACTIONS (1)
  - OSTEONECROSIS [None]
